FAERS Safety Report 5179490-5 (Version None)
Quarter: 2006Q4

REPORT INFORMATION
  Report Type: 
  Country: None (occurrence: None)
  Receive Date: 20061219
  Receipt Date: 20061108
  Transmission Date: 20070319
  Serious: Yes (Death, Life-Threatening, Hospitalization)
  Sender: FDA-Public Use
  Company Number: JP-ELI_LILLY_AND_COMPANY-JP200611001780

PATIENT
  Age: 68 Year
  Sex: Male

DRUGS (1)
  1. GEMZAR [Suspect]
     Indication: PANCREATIC CARCINOMA STAGE IV
     Dosage: 1000 MG/M2, OTHER
     Route: 042
     Dates: start: 20051017, end: 20060417

REACTIONS (8)
  - ASCITES [None]
  - CHOLANGITIS [None]
  - DEATH [None]
  - INTERSTITIAL LUNG DISEASE [None]
  - LIVER ABSCESS [None]
  - OEDEMA [None]
  - PLEURAL EFFUSION [None]
  - PNEUMONIA ASPIRATION [None]
